FAERS Safety Report 16019103 (Version 2)
Quarter: 2019Q1

REPORT INFORMATION
  Report Type: Report from Study
  Country: JP (occurrence: JP)
  Receive Date: 20190228
  Receipt Date: 20190307
  Transmission Date: 20190418
  Serious: Yes (Hospitalization)
  Sender: FDA-Public Use
  Company Number: JP-EISAI MEDICAL RESEARCH-EC-2019-052807

PATIENT
  Age: 75 Year
  Sex: Male
  Weight: 49 kg

DRUGS (14)
  1. ZADITEN [Concomitant]
     Active Substance: KETOTIFEN FUMARATE
  2. HOKUNALIN TAPE [Concomitant]
     Active Substance: TULOBUTEROL
  3. XYLOCAINE [Concomitant]
     Active Substance: LIDOCAINE HYDROCHLORIDE
  4. NEXIUM [Concomitant]
     Active Substance: ESOMEPRAZOLE MAGNESIUM
  5. HIRUDOID [Concomitant]
     Active Substance: GLYCOSAMINOGLYCANS
  6. SODIUM CHLORIDE. [Concomitant]
     Active Substance: SODIUM CHLORIDE
  7. ERIBULIN [Suspect]
     Active Substance: ERIBULIN
     Indication: SMALL CELL LUNG CANCER
     Route: 041
     Dates: start: 20190219
  8. DEXALTIN [Concomitant]
     Active Substance: DEXAMETHASONE
  9. CELECOX [Concomitant]
     Active Substance: CELECOXIB
  10. AZUNOL [Concomitant]
     Active Substance: SODIUM GUALENATE
  11. NITRAZEPAM [Concomitant]
     Active Substance: NITRAZEPAM
  12. VALTREX [Concomitant]
     Active Substance: VALACYCLOVIR HYDROCHLORIDE
  13. GLYCERIN. [Concomitant]
     Active Substance: GLYCERIN
  14. LOXONIN [Concomitant]
     Active Substance: LOXOPROFEN SODIUM

REACTIONS (1)
  - Febrile neutropenia [Recovered/Resolved]

NARRATIVE: CASE EVENT DATE: 20190226
